FAERS Safety Report 11534276 (Version 1)
Quarter: 2015Q3

REPORT INFORMATION
  Report Type: Spontaneous
  Country: US (occurrence: US)
  Receive Date: 20150922
  Receipt Date: 20150922
  Transmission Date: 20151125
  Serious: No
  Sender: FDA-Public Use
  Company Number: US-BEH-2015051215

PATIENT
  Age: 43 Year
  Sex: Female
  Weight: 64 kg

DRUGS (6)
  1. ALBURX [Suspect]
     Active Substance: ALBUMIN (HUMAN)
     Indication: NEUROPATHY PERIPHERAL
     Route: 042
     Dates: start: 20150504, end: 20150504
  2. ALBURX [Suspect]
     Active Substance: ALBUMIN (HUMAN)
     Route: 042
     Dates: start: 20150520, end: 20150520
  3. ALBURX [Suspect]
     Active Substance: ALBUMIN (HUMAN)
     Indication: PLASMAPHERESIS
     Dosage: 1 VOLUME EXCHANGE VIA PERMACATH, 5 BOTTLES, RATE: 103.4 ML/MIN; 11:25 AM TO 12:25 PM
     Route: 042
     Dates: start: 20150513, end: 20150513
  4. ALBURX [Suspect]
     Active Substance: ALBUMIN (HUMAN)
     Route: 042
     Dates: start: 20150603, end: 20150603
  5. ALBURX [Suspect]
     Active Substance: ALBUMIN (HUMAN)
     Route: 042
     Dates: start: 20150617, end: 20150617
  6. ALBURX [Suspect]
     Active Substance: ALBUMIN (HUMAN)
     Route: 042
     Dates: start: 20150527, end: 20150527

REACTIONS (3)
  - Chills [Recovered/Resolved]
  - Feeling cold [Recovered/Resolved]
  - Fatigue [Recovered/Resolved]

NARRATIVE: CASE EVENT DATE: 20150513
